FAERS Safety Report 5523600-4 (Version None)
Quarter: 2007Q4

REPORT INFORMATION
  Report Type: 
  Country: None (occurrence: None)
  Receive Date: 20071121
  Receipt Date: 20071114
  Transmission Date: 20080405
  Serious: Yes (Hospitalization)
  Sender: FDA-Public Use
  Company Number: JP-JNJFOC-20070204293

PATIENT
  Sex: Female
  Weight: 46 kg

DRUGS (36)
  1. REMICADE [Suspect]
     Route: 042
  2. REMICADE [Suspect]
     Route: 042
  3. REMICADE [Suspect]
     Route: 042
  4. REMICADE [Suspect]
     Route: 042
  5. REMICADE [Suspect]
     Route: 042
  6. REMICADE [Suspect]
     Route: 042
  7. REMICADE [Suspect]
     Route: 042
  8. REMICADE [Suspect]
     Route: 042
  9. REMICADE [Suspect]
     Route: 042
  10. REMICADE [Suspect]
     Route: 042
  11. REMICADE [Suspect]
     Route: 042
  12. REMICADE [Suspect]
     Route: 042
  13. REMICADE [Suspect]
     Indication: RHEUMATOID ARTHRITIS
     Route: 042
  14. RHEUMATREX [Concomitant]
     Indication: RHEUMATOID ARTHRITIS
     Route: 048
  15. PREDNISOLONE [Concomitant]
     Indication: RHEUMATOID ARTHRITIS
     Route: 048
  16. ANTIHISTAMINES [Concomitant]
  17. ANTIHISTAMINES [Concomitant]
  18. ANTIHISTAMINES [Concomitant]
  19. ANTIHISTAMINES [Concomitant]
  20. ANTIHISTAMINES [Concomitant]
  21. ANTIHISTAMINES [Concomitant]
  22. ANTIHISTAMINES [Concomitant]
  23. ANTIHISTAMINES [Concomitant]
  24. ANTIHISTAMINES [Concomitant]
  25. ANTIHISTAMINES [Concomitant]
  26. ANTIHISTAMINES [Concomitant]
  27. ANTIHISTAMINES [Concomitant]
  28. ANTIHISTAMINES [Concomitant]
     Indication: PROPHYLAXIS
  29. BREDININ [Concomitant]
     Indication: RHEUMATOID ARTHRITIS
     Route: 048
  30. NAPROXEN [Concomitant]
     Indication: RHEUMATOID ARTHRITIS
     Route: 048
  31. KOLANTYL [Concomitant]
     Indication: GASTRITIS
     Route: 048
  32. MECOBALAMIN [Concomitant]
     Indication: NEURALGIA
     Route: 048
  33. EBASTEL [Concomitant]
     Route: 048
  34. ALINAMIN-F [Concomitant]
     Indication: NEURALGIA
     Route: 048
  35. BRAULIBERA [Concomitant]
     Route: 048
  36. SOLETON [Concomitant]
     Indication: RHEUMATOID ARTHRITIS
     Route: 048

REACTIONS (1)
  - BREAST CANCER [None]
